FAERS Safety Report 17580662 (Version 1)
Quarter: 2020Q1

REPORT INFORMATION
  Report Type: Report from Study
  Country: None (occurrence: US)
  Receive Date: 20200325
  Receipt Date: 20200325
  Transmission Date: 20200409
  Serious: Yes (Other)
  Sender: FDA-Public Use
  Company Number: US-ABBVIE-20K-163-3328417-00

PATIENT
  Age: 61 Year
  Sex: Female

DRUGS (1)
  1. RINVOQ [Suspect]
     Active Substance: UPADACITINIB
     Indication: RHEUMATOID ARTHRITIS
     Route: 048

REACTIONS (5)
  - Gastric bypass [Recovered/Resolved]
  - Abdominal pain upper [Recovered/Resolved]
  - Arthritis [Not Recovered/Not Resolved]
  - Influenza [Recovered/Resolved]
  - Hiccups [Unknown]

NARRATIVE: CASE EVENT DATE: 202001
